FAERS Safety Report 24547581 (Version 1)
Quarter: 2024Q4

REPORT INFORMATION
  Report Type: Report from Study
  Country: EG (occurrence: EG)
  Receive Date: 20241025
  Receipt Date: 20241025
  Transmission Date: 20250115
  Serious: No
  Sender: SANDOZ
  Company Number: EG-SANDOZ-SDZ2023EG041588

PATIENT
  Age: 8 Year
  Sex: Male
  Weight: 28 kg

DRUGS (3)
  1. OMNITROPE [Suspect]
     Active Substance: SOMATROPIN
     Indication: Growth hormone deficiency
     Dosage: 1.1 MG, QD, 10 MG /1.5 ML IN CARTRIDGE
     Route: 058
     Dates: start: 20231002
  2. OMNITROPE [Suspect]
     Active Substance: SOMATROPIN
     Dosage: OMNITROPE 5 MG IN CARTRIDGE
     Route: 058
     Dates: start: 20221002
  3. ZINC [Concomitant]
     Active Substance: ZINC
     Indication: Hypovitaminosis
     Dosage: UNK UNK, QD 5CM
     Route: 048
     Dates: start: 202301

REACTIONS (6)
  - Injection site scar [Not Recovered/Not Resolved]
  - Multiple use of single-use product [Unknown]
  - Wrong technique in product usage process [Unknown]
  - Expired device used [Unknown]
  - Product availability issue [Unknown]
  - Therapy change [Unknown]

NARRATIVE: CASE EVENT DATE: 20211231
